FAERS Safety Report 23664395 (Version 1)
Quarter: 2024Q1

REPORT INFORMATION
  Report Type: Spontaneous
  Country: US (occurrence: US)
  Receive Date: 20240322
  Receipt Date: 20240322
  Transmission Date: 20240409
  Serious: Yes (Hospitalization)
  Sender: FDA-Public Use
  Company Number: US-SA-SAC20240313000282

PATIENT

DRUGS (2)
  1. LARONIDASE [Suspect]
     Active Substance: LARONIDASE
     Indication: Mucopolysaccharidosis I
     Dosage: 43.5 (UNITS NOT PROVIDED), QW
     Route: 042
     Dates: start: 20220210, end: 2024
  2. LARONIDASE [Suspect]
     Active Substance: LARONIDASE
     Dosage: 43.5 (UNITS NOT PROVIDED), QW
     Route: 042
     Dates: start: 20240312

REACTIONS (1)
  - Skin infection [Recovering/Resolving]

NARRATIVE: CASE EVENT DATE: 20240101
